FAERS Safety Report 9753760 (Version 2)
Quarter: 2013Q4

REPORT INFORMATION
  Report Type: Spontaneous
  Country: US (occurrence: US)
  Receive Date: 20131213
  Receipt Date: 20131213
  Transmission Date: 20140711
  Serious: No
  Sender: FDA-Public Use
  Company Number: US-GILEAD-2010-0026593

PATIENT
  Age: 75 Year
  Sex: Female
  Weight: 76.4 kg

DRUGS (16)
  1. LETAIRIS [Suspect]
     Indication: PULMONARY ARTERIAL HYPERTENSION
     Route: 048
     Dates: start: 20100115, end: 20100118
  2. REVATIO [Suspect]
     Indication: PULMONARY ARTERIAL HYPERTENSION
     Route: 048
  3. SOTALOL HCL [Concomitant]
     Indication: ATRIAL FIBRILLATION
  4. XANAX [Concomitant]
  5. PRISTIQ [Concomitant]
  6. METFORMIN [Concomitant]
  7. COUMADIN [Concomitant]
  8. SIMVASTIN [Concomitant]
  9. PRILOSEC [Concomitant]
  10. ASPIRIN [Concomitant]
  11. CALCIUM AND MAGNESIUM [Concomitant]
  12. CHROMIUM [Concomitant]
  13. VITAMIN D [Concomitant]
  14. OMEGA 3 [Concomitant]
  15. MULTIVITAMIN [Concomitant]
  16. KELP TAB [Concomitant]

REACTIONS (4)
  - Dizziness [Recovering/Resolving]
  - Balance disorder [Recovering/Resolving]
  - Asthenia [Recovering/Resolving]
  - Nausea [Recovering/Resolving]
